FAERS Safety Report 9329830 (Version 1)
Quarter: 2013Q2

REPORT INFORMATION
  Report Type: Spontaneous
  Country: US (occurrence: US)
  Receive Date: 20130604
  Receipt Date: 20130604
  Transmission Date: 20140414
  Serious: No
  Sender: FDA-Public Use
  Company Number: US-SANOFI-AVENTIS-2013SA003615

PATIENT
  Age: 67 Year
  Sex: Female

DRUGS (23)
  1. SOLOSTAR [Suspect]
     Indication: TYPE 2 DIABETES MELLITUS
     Dates: start: 2007
  2. LANTUS SOLOSTAR [Suspect]
     Indication: TYPE 2 DIABETES MELLITUS
     Dosage: DOSE:50 UNIT(S)
     Route: 051
     Dates: start: 2007
  3. NOVOLOG [Suspect]
     Dates: start: 2007
  4. FISH OIL [Concomitant]
  5. SIMVASTATIN [Concomitant]
  6. OXYBUTYNIN [Concomitant]
  7. PRAMIPEXOL [Concomitant]
  8. GLIPIZIDE [Concomitant]
  9. METOPROLOL [Concomitant]
  10. WARFARIN [Concomitant]
  11. ACETAMINOPHEN [Concomitant]
  12. MULTIVITAMINS [Concomitant]
  13. CALCIUM [Concomitant]
  14. VITAMIN D [Concomitant]
  15. IRON [Concomitant]
  16. ASPIRIN [Concomitant]
  17. GABAPENTIN [Concomitant]
  18. RAMIPRIL [Concomitant]
  19. OMEPRAZOLE [Concomitant]
  20. AMITRIP [Concomitant]
  21. OXYBUTYNIN [Concomitant]
  22. POTASSIUM [Concomitant]
  23. ALL OTHER THERAPEUTIC PRODUCTS [Concomitant]

REACTIONS (3)
  - Blood glucose increased [Recovered/Resolved]
  - Foreign body [Recovered/Resolved]
  - Injury associated with device [Unknown]
